FAERS Safety Report 16399110 (Version 1)
Quarter: 2019Q2

REPORT INFORMATION
  Report Type: Spontaneous
  Country: US (occurrence: US)
  Receive Date: 20190501
  Receipt Date: 20190501
  Transmission Date: 20190711
  Serious: Yes (Death)
  Sender: FDA-Public Use
  Company Number: None

PATIENT
  Age: 83 Year
  Sex: Male

DRUGS (1)
  1. DONEPEZIL 5MG [Suspect]
     Active Substance: DONEPEZIL
     Indication: DEMENTIA
     Route: 048
     Dates: start: 20190426, end: 20190427

REACTIONS (3)
  - Muscular weakness [None]
  - Gait disturbance [None]
  - Incontinence [None]

NARRATIVE: CASE EVENT DATE: 20190428
